FAERS Safety Report 9897999 (Version 2)
Quarter: 2014Q1

REPORT INFORMATION
  Report Type: Spontaneous
  Country: JP (occurrence: JP)
  Receive Date: 20140214
  Receipt Date: 20140310
  Transmission Date: 20141002
  Serious: Yes (Disabling)
  Sender: FDA-Public Use
  Company Number: JP-B.I. PHARMACEUTICALS,INC./RIDGEFIELD-2014-BI-06426NB

PATIENT
  Age: 72 Year
  Sex: Female

DRUGS (3)
  1. PRAZAXA [Suspect]
     Indication: ATRIAL FIBRILLATION
     Dosage: 300 MG
     Route: 048
     Dates: start: 20140206, end: 20140209
  2. B-BLOCKING AGENTS [Concomitant]
     Indication: CARDIAC FAILURE
     Route: 065
     Dates: start: 201402
  3. B-BLOCKING AGENTS [Concomitant]
     Indication: TACHYCARDIA

REACTIONS (1)
  - Embolic stroke [Recovered/Resolved with Sequelae]
